FAERS Safety Report 17407436 (Version 1)
Quarter: 2020Q1

REPORT INFORMATION
  Report Type: Spontaneous
  Country: US (occurrence: US)
  Receive Date: 20200128
  Receipt Date: 20200128
  Transmission Date: 20200409
  Serious: No
  Sender: FDA-Public Use
  Company Number: None

PATIENT
  Age: 62 Year
  Sex: Female

DRUGS (1)
  1. TADALAFIL TAB 20MG [Suspect]
     Active Substance: TADALAFIL
     Indication: PULMONARY HYPERTENSION
     Route: 048
     Dates: start: 201801

REACTIONS (3)
  - Therapy cessation [None]
  - Chest discomfort [None]
  - Product distribution issue [None]

NARRATIVE: CASE EVENT DATE: 20200104
